FAERS Safety Report 7433960-5 (Version None)
Quarter: 2011Q2

REPORT INFORMATION
  Report Type: 
  Country: None (occurrence: None)
  Receive Date: 20110420
  Receipt Date: 20110420
  Transmission Date: 20111010
  Serious: Yes (Life-Threatening, Hospitalization, Other)
  Sender: FDA-Public Use
  Company Number: None

PATIENT
  Age: 61 Year
  Sex: Female
  Weight: 77.1115 kg

DRUGS (1)
  1. RECLAST [Suspect]

REACTIONS (5)
  - CARDIAC FAILURE CONGESTIVE [None]
  - RENAL FAILURE ACUTE [None]
  - URINE ODOUR ABNORMAL [None]
  - INFLUENZA LIKE ILLNESS [None]
  - CHROMATURIA [None]
